FAERS Safety Report 8095438 (Version 2)
Quarter: 2012Q4

REPORT INFORMATION
  Report Type: 
  Country: GB (occurrence: GB)
  Receive Date: 20110818
  Receipt Date: 20120924
  Transmission Date: 20130627
  Serious: Yes (Life-Threatening, Hospitalization, Other)
  Sender: FDA-Public Use
  Company Number: GB-RANBAXY-2011R1-46872

PATIENT
  Age: 67 Year
  Sex: Female

DRUGS (6)
  1. FLECAINIDE ACETATE [Suspect]
     Indication: ATRIAL FIBRILLATION
     Dosage: UNK
     Route: 065
  2. TONIC (CONTAINING QUININE) [Interacting]
     Indication: PRODUCT USED FOR UNKNOWN INDICATION
     Dosage: UNK
     Route: 065
  3. ASPIRIN [Concomitant]
     Indication: PRODUCT USED FOR UNKNOWN INDICATION
     Dosage: UNK
     Route: 065
  4. FUROSEMIDE [Concomitant]
     Indication: PRODUCT USED FOR UNKNOWN INDICATION
     Dosage: UNK
     Route: 065
  5. SODIUM VALPROATE [Concomitant]
     Indication: CONVULSION
     Dosage: UNK
     Route: 065
  6. VERAPAMIL [Concomitant]
     Indication: ATRIAL FIBRILLATION
     Dosage: UNK
     Route: 065

REACTIONS (9)
  - Torsade de pointes [Recovered/Resolved]
  - Electrocardiogram QT prolonged [Recovered/Resolved]
  - Drug interaction [Recovered/Resolved]
  - Alcohol use [None]
  - Cardiac arrest [None]
  - Ventricular fibrillation [None]
  - Blood pH decreased [None]
  - PO2 increased [None]
  - Base excess decreased [None]
